FAERS Safety Report 17655382 (Version 1)
Quarter: 2020Q2

REPORT INFORMATION
  Report Type: Spontaneous
  Country: US (occurrence: US)
  Receive Date: 20200409
  Receipt Date: 20200409
  Transmission Date: 20200713
  Serious: No
  Sender: FDA-Public Use
  Company Number: None

PATIENT
  Age: 54 Year
  Sex: Female

DRUGS (1)
  1. COPAXONE [Suspect]
     Active Substance: GLATIRAMER ACETATE
     Indication: MULTIPLE SCLEROSIS
     Route: 058
     Dates: start: 201306

REACTIONS (8)
  - Dizziness [None]
  - Fall [None]
  - Blood potassium decreased [None]
  - Discomfort [None]
  - Clumsiness [None]
  - Pain in extremity [None]
  - Syncope [None]
  - Blood pressure decreased [None]

NARRATIVE: CASE EVENT DATE: 20200401
